FAERS Safety Report 8218807-1 (Version None)
Quarter: 2012Q1

REPORT INFORMATION
  Report Type: 
  Country: None (occurrence: None)
  Receive Date: 20120319
  Receipt Date: 20120313
  Transmission Date: 20120608
  Serious: Yes (Other)
  Sender: FDA-Public Use
  Company Number: PHEH2012US005315

PATIENT
  Sex: Female

DRUGS (1)
  1. GILENYA [Suspect]
     Indication: MULTIPLE SCLEROSIS
     Dosage: 0.5 MG, DAILY
     Route: 048
     Dates: start: 20111110

REACTIONS (5)
  - VISUAL IMPAIRMENT [None]
  - ABNORMAL SENSATION IN EYE [None]
  - VISION BLURRED [None]
  - BACK PAIN [None]
  - GLAUCOMA [None]
